FAERS Safety Report 7368842-0 (Version None)
Quarter: 2011Q1

REPORT INFORMATION
  Report Type: 
  Country: None (occurrence: None)
  Receive Date: 20110323
  Receipt Date: 20110303
  Transmission Date: 20110831
  Serious: No
  Sender: FDA-Public Use
  Company Number: US-B.I. PHARMACEUTICALS,INC./RIDGEFIELD-2011-BP-07036BP

PATIENT
  Age: 50 Year
  Sex: Male

DRUGS (1)
  1. FLOMAX [Suspect]
     Indication: BENIGN PROSTATIC HYPERPLASIA
     Dosage: 0.4 MG
     Route: 048
     Dates: start: 20110216, end: 20110225

REACTIONS (5)
  - EJACULATION FAILURE [None]
  - ANGER [None]
  - SEXUAL DYSFUNCTION [None]
  - SEMEN VOLUME DECREASED [None]
  - LIBIDO DECREASED [None]
